FAERS Safety Report 21301711 (Version 1)
Quarter: 2022Q3

REPORT INFORMATION
  Report Type: Spontaneous
  Country: US (occurrence: None)
  Receive Date: 20220906
  Receipt Date: 20220906
  Transmission Date: 20221026
  Serious: Yes (Other)
  Sender: FDA-Public Use
  Company Number: None

PATIENT
  Age: 38 Year
  Sex: Female
  Weight: 88.2 kg

DRUGS (6)
  1. DOCETAXEL [Suspect]
     Active Substance: DOCETAXEL
     Indication: Breast cancer female
     Dosage: OTHER FREQUENCY : EVERY 21 DAYS;?
     Route: 041
     Dates: start: 20220902, end: 20220902
  2. CARBOPLATIN [Concomitant]
     Active Substance: CARBOPLATIN
     Dates: start: 20220902, end: 20220902
  3. DexamethasoneA [Concomitant]
     Dates: start: 20220902, end: 20220902
  4. AKYNZEO [Concomitant]
     Dates: start: 20220902, end: 20220902
  5. PERJETA [Concomitant]
     Active Substance: PERTUZUMAB
     Dates: start: 20220902, end: 20220902
  6. TRAZIMERA [Concomitant]
     Active Substance: TRASTUZUMAB-QYYP
     Dates: start: 20220902, end: 20220902

REACTIONS (5)
  - Infusion related reaction [None]
  - Flushing [None]
  - Dyspnoea [None]
  - Dizziness [None]
  - Oxygen saturation decreased [None]

NARRATIVE: CASE EVENT DATE: 20220902
